FAERS Safety Report 12547674 (Version 1)
Quarter: 2016Q3

REPORT INFORMATION
  Report Type: Spontaneous
  Country: AT (occurrence: AT)
  Receive Date: 20160712
  Receipt Date: 20160712
  Transmission Date: 20161109
  Serious: Yes (Death)
  Sender: FDA-Public Use
  Company Number: AT-CIPLA LTD.-2016AT09358

PATIENT

DRUGS (1)
  1. GEMCITABINE [Suspect]
     Active Substance: GEMCITABINE\GEMCITABINE HYDROCHLORIDE
     Indication: BLADDER CANCER
     Dosage: UNK, TWICE WEEKLY ADMINISTERED BY A 30-MIN INFUSION NO LATER THAN 2 H BEFORE RADIATION
     Route: 042

REACTIONS (1)
  - Disease progression [Fatal]
